FAERS Safety Report 15780594 (Version 5)
Quarter: 2019Q1

REPORT INFORMATION
  Report Type: Report from Study
  Country: US (occurrence: US)
  Receive Date: 20190102
  Receipt Date: 20190323
  Transmission Date: 20190417
  Serious: No
  Sender: FDA-Public Use
  Company Number: PHEH2018US055079

PATIENT
  Age: 49 Year
  Sex: Female

DRUGS (1)
  1. GILENYA [Suspect]
     Active Substance: FINGOLIMOD HYDROCHLORIDE
     Indication: MULTIPLE SCLEROSIS
     Dosage: 0.5 MG, QD
     Route: 048
     Dates: start: 20181218

REACTIONS (10)
  - Cardiac disorder [Unknown]
  - Pain [Unknown]
  - Tremor [Unknown]
  - Dizziness [Unknown]
  - Tongue dry [Not Recovered/Not Resolved]
  - Asthenia [Unknown]
  - Chest discomfort [Not Recovered/Not Resolved]
  - Somnolence [Unknown]
  - Hypoaesthesia [Not Recovered/Not Resolved]
  - Dysphagia [Not Recovered/Not Resolved]

NARRATIVE: CASE EVENT DATE: 20181218
